FAERS Safety Report 16711046 (Version 2)
Quarter: 2019Q3

REPORT INFORMATION
  Report Type: Spontaneous
  Country: US (occurrence: US)
  Receive Date: 20190816
  Receipt Date: 20190925
  Transmission Date: 20191004
  Serious: Yes (Life-Threatening, Disabling, Other)
  Sender: FDA-Public Use
  Company Number: US-GILEAD-2019-0423817

PATIENT
  Age: 52 Year
  Sex: Male

DRUGS (1)
  1. EPCLUSA [Suspect]
     Active Substance: SOFOSBUVIR\VELPATASVIR
     Indication: PRODUCT USED FOR UNKNOWN INDICATION
     Dosage: UNK
     Route: 065

REACTIONS (3)
  - Bradycardia [Recovered/Resolved]
  - Dizziness [Unknown]
  - Fatigue [Unknown]

NARRATIVE: CASE EVENT DATE: 201907
